FAERS Safety Report 4342006-7 (Version None)
Quarter: 2004Q1

REPORT INFORMATION
  Report Type: 
  Country: None (occurrence: None)
  Receive Date: 20040329
  Receipt Date: 20040106
  Transmission Date: 20041129
  Serious: No
  Sender: FDA-Public Use
  Company Number: 04P-163-0246268-00

PATIENT
  Age: 45 Year
  Sex: Female
  Weight: 52.1637 kg

DRUGS (13)
  1. HUMIRA [Suspect]
     Indication: RHEUMATOID ARTHRITIS
     Dosage: 40 MG, 1 IN 1 WK, SUBCUTANEOUS
     Route: 058
     Dates: start: 20030530
  2. LISINOPRIL [Concomitant]
  3. METOPROLOL SUCCINATE [Concomitant]
  4. LEVOTHYROXINE SODIUM [Concomitant]
  5. CONJUGATED ESTROGEN [Concomitant]
  6. TRAMADOL HCL [Concomitant]
  7. PREDNISONE [Concomitant]
  8. ROFECOXIB [Concomitant]
  9. IBUPROFEN [Concomitant]
  10. METHOTREXATE [Concomitant]
  11. ALPRAZOLAM [Concomitant]
  12. HYOSCYAMINE [Concomitant]
  13. LORATADINE [Concomitant]

REACTIONS (1)
  - INJECTION SITE ERYTHEMA [None]
